FAERS Safety Report 21856627 (Version 2)
Quarter: 2023Q1

REPORT INFORMATION
  Report Type: Spontaneous
  Country: US (occurrence: US)
  Receive Date: 20230112
  Receipt Date: 20230323
  Transmission Date: 20230418
  Serious: No
  Sender: FDA-Public Use
  Company Number: US-SA-SAC20230109001005

PATIENT
  Sex: Female

DRUGS (1)
  1. DUPIXENT [Suspect]
     Active Substance: DUPILUMAB
     Dosage: 300 MG, OTHER
     Route: 058

REACTIONS (14)
  - Nasal congestion [Unknown]
  - Fatigue [Recovered/Resolved]
  - Burning sensation [Unknown]
  - Contusion [Unknown]
  - Peripheral swelling [Unknown]
  - Cough [Unknown]
  - Vomiting [Unknown]
  - Upper-airway cough syndrome [Unknown]
  - Erythema [Unknown]
  - Insomnia [Unknown]
  - Pruritus [Not Recovered/Not Resolved]
  - Insomnia [Recovered/Resolved]
  - Dry eye [Unknown]
  - Injection site reaction [Recovered/Resolved]
